FAERS Safety Report 5320643-0 (Version None)
Quarter: 2007Q2

REPORT INFORMATION
  Report Type: 
  Country: None (occurrence: None)
  Receive Date: 20070509
  Receipt Date: 20070508
  Transmission Date: 20071010
  Serious: Yes (Hospitalization)
  Sender: FDA-Public Use
  Company Number: US-BRISTOL-MYERS SQUIBB COMPANY-13728936

PATIENT
  Age: 42 Year
  Sex: Male
  Weight: 115 kg

DRUGS (16)
  1. COUMADIN [Suspect]
     Indication: DEEP VEIN THROMBOSIS
     Dosage: DOSE 20MG 31MAR07, ALSO GIVEN 60 MG 28MAR07, 30MG 1APR07, 50MG 3APR-5APR07
     Route: 048
     Dates: start: 20040101
  2. COUMADIN [Suspect]
     Dosage: 5MG 20MAR-23MAR07, ALSO TOOK 7.5MG 24MAR-27MAR07
     Route: 042
     Dates: start: 20040101
  3. ADVAIR DISKUS 100/50 [Concomitant]
  4. ALBUTEROL [Concomitant]
  5. ASPIRIN [Concomitant]
  6. DIAZEPAM [Concomitant]
  7. METOPROLOL SUCCINATE [Concomitant]
  8. ATORVASTATIN CALCIUM [Concomitant]
  9. MEPERIDINE HCL [Concomitant]
  10. METHYLPREDNISOLONE 16MG TAB [Concomitant]
  11. HEPARIN [Concomitant]
  12. ENOXAPARIN SODIUM [Concomitant]
  13. ACETAMINOPHEN [Concomitant]
  14. PANTOPRAZOLE [Concomitant]
  15. POTASSIUM CHLORIDE [Concomitant]
  16. CLOPIDOGREL BISULFATE [Concomitant]

REACTIONS (4)
  - BLOOD CULTURE POSITIVE [None]
  - COAGULOPATHY [None]
  - DEEP VEIN THROMBOSIS [None]
  - PULMONARY EMBOLISM [None]
